FAERS Safety Report 7575273-7 (Version None)
Quarter: 2011Q2

REPORT INFORMATION
  Report Type: 
  Country: None (occurrence: None)
  Receive Date: 20110627
  Receipt Date: 20110622
  Transmission Date: 20111010
  Serious: Yes (Disabling, Other)
  Sender: FDA-Public Use
  Company Number: US-PFIZER INC-2011123457

PATIENT
  Sex: Male
  Weight: 56.689 kg

DRUGS (5)
  1. TOVIAZ [Suspect]
     Dosage: 4 MG, DAILY
     Route: 048
     Dates: start: 20110506
  2. PROPRANOLOL [Concomitant]
     Indication: CARDIAC DISORDER
  3. PROPRANOLOL [Concomitant]
     Indication: BLOOD PRESSURE ABNORMAL
     Dosage: 100 MG, DAILY
     Route: 048
  4. TOPROL-XL [Concomitant]
     Indication: CARDIAC DISORDER
  5. TOPROL-XL [Concomitant]
     Indication: BLOOD PRESSURE ABNORMAL
     Dosage: 100 MG, DAILY
     Route: 048

REACTIONS (2)
  - SPEECH DISORDER [None]
  - URINE ABNORMALITY [None]
